FAERS Safety Report 4707121-4 (Version None)
Quarter: 2005Q3

REPORT INFORMATION
  Report Type: 
  Country: None (occurrence: None)
  Receive Date: 20050701
  Receipt Date: 20050622
  Transmission Date: 20060218
  Serious: Yes (Other)
  Sender: FDA-Public Use
  Company Number: EM2005-0276

PATIENT
  Age: 41 Year
  Sex: Male
  Weight: 58 kg

DRUGS (5)
  1. PROLEUKIN [Suspect]
     Indication: RENAL CELL CARCINOMA STAGE UNSPECIFIED
     Dosage: 18 MIU, SUBCUTAN.
     Route: 058
     Dates: start: 20050318, end: 20050323
  2. FOLIC ACID [Concomitant]
  3. INTERFERON ALFA-2B (INTERFERON ALFA-2B) [Concomitant]
  4. FERROUS SULPHATE (FERROUS SULFTE) [Concomitant]
  5. MEGESTROL ACETTE 9MEGRESTOL ACETATE) [Concomitant]

REACTIONS (11)
  - BLISTER [None]
  - FAT NECROSIS [None]
  - INJECTION SITE NECROSIS [None]
  - INJECTION SITE ULCER [None]
  - OEDEMA [None]
  - PYREXIA [None]
  - RASH VESICULAR [None]
  - SKIN EXFOLIATION [None]
  - ULCER [None]
  - URINARY RETENTION [None]
  - WEIGHT INCREASED [None]
